FAERS Safety Report 24189971 (Version 2)
Quarter: 2024Q3

REPORT INFORMATION
  Report Type: Spontaneous
  Country: FR (occurrence: FR)
  Receive Date: 20240808
  Receipt Date: 20240813
  Transmission Date: 20241017
  Serious: Yes (Death)
  Sender: PFIZER
  Company Number: None

PATIENT
  Age: 95 Year
  Sex: Male
  Weight: 70.4 kg

DRUGS (6)
  1. LEVETIRACETAM [Suspect]
     Active Substance: LEVETIRACETAM
     Indication: Epilepsy
     Dosage: 1 G, 2X/DAY (FREQ: 12H)
     Route: 048
     Dates: start: 20180522, end: 20240126
  2. PANTOPRAZOLE [Suspect]
     Active Substance: PANTOPRAZOLE
     Indication: Gastrooesophageal reflux disease
     Dosage: 40 MG, 1X/DAY
     Route: 048
     Dates: start: 20180523, end: 20240108
  3. FOSINOPRIL [Suspect]
     Active Substance: FOSINOPRIL
     Indication: Hypertension
     Dosage: 10 MG, 1X/DAY
     Route: 048
     Dates: start: 2018, end: 20240101
  4. BETAHISTINE HYDROCHLORIDE [Suspect]
     Active Substance: BETAHISTINE HYDROCHLORIDE
     Dosage: 1 DF, 3X/DAY (FREQ: 8H)
     Route: 048
     Dates: start: 2022, end: 20240103
  5. ALLOPURINOL [Suspect]
     Active Substance: ALLOPURINOL
     Indication: Hyperuricaemia
     Dosage: 100 MG, 1X/DAY
     Route: 048
     Dates: start: 2022, end: 20240101
  6. DOLIPRANE [Concomitant]
     Active Substance: ACETAMINOPHEN
     Indication: Pain
     Dosage: 1 DF
     Route: 048

REACTIONS (3)
  - Colitis [Fatal]
  - Diarrhoea [Fatal]
  - Hypovolaemic shock [Fatal]

NARRATIVE: CASE EVENT DATE: 20231227
